FAERS Safety Report 8822885 (Version 1)
Quarter: 2012Q4

REPORT INFORMATION
  Report Type: 
  Country: CN (occurrence: CN)
  Receive Date: 20121003
  Receipt Date: 20121003
  Transmission Date: 20130627
  Serious: Yes (Hospitalization)
  Sender: FDA-Public Use
  Company Number: CN-JNJFOC-20120913125

PATIENT
  Sex: Male

DRUGS (1)
  1. PARACETAMOL [Suspect]
     Indication: PYREXIA
     Dosage: 160 mg/5 mL
     Route: 048
     Dates: start: 20100329, end: 20100329

REACTIONS (1)
  - Drug reaction with eosinophilia and systemic symptoms [Recovering/Resolving]
